FAERS Safety Report 9201391 (Version 1)
Quarter: 2013Q1

REPORT INFORMATION
  Report Type: Spontaneous
  Country: US (occurrence: None)
  Receive Date: 20130327
  Receipt Date: 20130327
  Transmission Date: 20140127
  Serious: No
  Sender: FDA-Public Use
  Company Number: MERCK1303USA007337

PATIENT
  Sex: Male

DRUGS (1)
  1. BCG LIVE [Suspect]
     Dosage: INTRAVESICAL

REACTIONS (1)
  - Drug ineffective [None]
